FAERS Safety Report 10232891 (Version 2)
Quarter: 2014Q3

REPORT INFORMATION
  Report Type: Spontaneous
  Country: US (occurrence: None)
  Receive Date: 20140610
  Receipt Date: 20140701
  Transmission Date: 20150326
  Serious: Yes (Other)
  Sender: FDA-Public Use
  Company Number: 20140303

PATIENT
  Age: 73 Year
  Sex: Female

DRUGS (3)
  1. LEVOTHYROXINE [Concomitant]
     Active Substance: LEVOTHYROXINE
  2. CARVEDILOL. [Concomitant]
     Active Substance: CARVEDILOL
  3. HYDRALAZINE HCL INJECTION, USP (0911-25) 20MG/ML [Suspect]
     Active Substance: HYDRALAZINE HYDROCHLORIDE
     Indication: HYPERTENSION
     Dosage: DOSE UNKNOWN UNKNOWN

REACTIONS (10)
  - Pallor [None]
  - Fatigue [None]
  - Vasculitis [None]
  - Glomerulonephritis [None]
  - Dyspnoea [None]
  - Weight decreased [None]
  - Lupus-like syndrome [None]
  - Arthralgia [None]
  - Rash [None]
  - Dyspnoea exertional [None]
